FAERS Safety Report 14497435 (Version 1)
Quarter: 2018Q1

REPORT INFORMATION
  Report Type: Spontaneous
  Country: US (occurrence: US)
  Receive Date: 20180207
  Receipt Date: 20180207
  Transmission Date: 20180509
  Serious: Yes (Other)
  Sender: FDA-Public Use
  Company Number: US-JNJFOC-20180202788

PATIENT
  Sex: Female

DRUGS (1)
  1. TOPAMAX [Suspect]
     Active Substance: TOPIRAMATE
     Indication: PRODUCT USED FOR UNKNOWN INDICATION
     Dosage: STARTED IN EITHER 2002 OR 2003
     Route: 048

REACTIONS (4)
  - Coeliac disease [Unknown]
  - Incorrect dose administered [Unknown]
  - Off label use [Unknown]
  - Product availability issue [Unknown]
